FAERS Safety Report 4349668-9 (Version None)
Quarter: 2004Q2

REPORT INFORMATION
  Report Type: 
  Country: None (occurrence: None)
  Receive Date: 20040426
  Receipt Date: 20030707
  Transmission Date: 20050107
  Serious: Yes (Hospitalization)
  Sender: FDA-Public Use
  Company Number: 2003028948

PATIENT
  Age: 70 Year
  Sex: Male
  Weight: 97.5 kg

DRUGS (4)
  1. ZITHROMAX [Suspect]
     Indication: PROPHYLAXIS
     Dosage: 250 MG (DAILY), ORAL
     Route: 048
     Dates: start: 20030624, end: 20030625
  2. BLINDED THERAPY(BLINDED THERAPY) [Concomitant]
  3. DIPYRIDAMOLE [Concomitant]
  4. ACETYLSALICYLIC ACID SRT [Concomitant]

REACTIONS (1)
  - THROMBOCYTOPENIA [None]
